FAERS Safety Report 9371996 (Version 2)
Quarter: 2013Q4

REPORT INFORMATION
  Report Type: Spontaneous
  Country: US (occurrence: US)
  Receive Date: 20130627
  Receipt Date: 20131022
  Transmission Date: 20140711
  Serious: Yes (Death, Life-Threatening, Other)
  Sender: FDA-Public Use
  Company Number: US-VERTEX PHARMACEUTICALS INC-2013-007447

PATIENT
  Sex: Female

DRUGS (6)
  1. INCIVEK [Suspect]
     Indication: HEPATITIS C
     Dosage: UNK
     Route: 048
     Dates: start: 20130415
  2. PEGASYS [Suspect]
     Indication: HEPATITIS C
     Dosage: UNK
     Dates: start: 20130415
  3. RIBAVIRIN [Suspect]
     Indication: HEPATITIS C
     Dosage: UNK
     Dates: start: 20130415
  4. LASIX [Suspect]
  5. LANSOPRAZOLE [Suspect]
  6. ALDACTONE [Suspect]

REACTIONS (8)
  - Septic shock [Fatal]
  - Drug interaction [Unknown]
  - Staphylococcal skin infection [Unknown]
  - Herpes zoster [Recovered/Resolved]
  - Eczema [Unknown]
  - Rash generalised [Unknown]
  - Rash pustular [Unknown]
  - Pruritus [Unknown]
